FAERS Safety Report 21220302 (Version 2)
Quarter: 2022Q3

REPORT INFORMATION
  Report Type: Other
  Country: UA (occurrence: UA)
  Receive Date: 20220817
  Receipt Date: 20220826
  Transmission Date: 20221027
  Serious: Yes (Other)
  Sender: FDA-Public Use
  Company Number: UA-GLENMARK PHARMACEUTICALS-2022GMK074363

PATIENT

DRUGS (5)
  1. LINEZOLID [Suspect]
     Active Substance: LINEZOLID
     Indication: Pulmonary tuberculosis
     Dosage: 600 MILLIGRAM, QD (EVERY 24 HOURS)
     Route: 048
     Dates: start: 20170403
  2. AMOXICILLIN\CLAVULANATE POTASSIUM [Concomitant]
     Active Substance: AMOXICILLIN\CLAVULANATE POTASSIUM
     Indication: Pulmonary tuberculosis
     Dosage: 1 DOSAGE FORM (ONCE IN 2 DAYS)
     Route: 048
     Dates: start: 20170517
  3. CYCLOSERINE [Concomitant]
     Active Substance: CYCLOSERINE
     Indication: Pulmonary tuberculosis
     Dosage: 750 MILLIGRAM, QD
     Route: 048
     Dates: start: 20170411
  4. MEROPENEM [Concomitant]
     Active Substance: MEROPENEM
     Indication: Pulmonary tuberculosis
     Dosage: 1000 MILLIGRAM, ONCE IN 2 DAYS
     Route: 041
     Dates: start: 20170517
  5. SIRTURO [Concomitant]
     Active Substance: BEDAQUILINE FUMARATE
     Indication: Pulmonary tuberculosis
     Dosage: 200 MILLIGRAM, QD
     Route: 048
     Dates: start: 20170517

REACTIONS (2)
  - Polyneuropathy [Recovered/Resolved]
  - Product use in unapproved indication [Unknown]

NARRATIVE: CASE EVENT DATE: 20170403
